FAERS Safety Report 7776648 (Version 2)
Quarter: 2013Q3

REPORT INFORMATION
  Report Type: Spontaneous
  Country: US (occurrence: US)
  Receive Date: 20110127
  Receipt Date: 20130725
  Transmission Date: 20140515
  Serious: Yes (Hospitalization, Other)
  Sender: FDA-Public Use
  Company Number: US-PFIZER INC-2011013176

PATIENT
  Age: 49 Year
  Sex: Female

DRUGS (9)
  1. DILANTIN-125 [Suspect]
     Indication: GRAND MAL CONVULSION
     Dosage: UNK
     Dates: start: 20090215, end: 20090215
  2. BACLOFEN [Concomitant]
     Dosage: 10 MG, 3X/DAY
     Route: 048
     Dates: start: 20090214
  3. LORCET [Concomitant]
     Indication: BREAKTHROUGH PAIN
     Dosage: 10 MG, AS NEEDED
     Route: 048
     Dates: start: 20090214
  4. NEURONTIN [Concomitant]
     Dosage: 800 MG, 1X/DAY (AT NIGHT)
     Route: 048
     Dates: start: 20090214
  5. PRAVACHOL [Concomitant]
     Indication: HYPERLIPIDAEMIA
     Dosage: 40 MG, 1X/DAY
     Route: 048
     Dates: start: 20090214
  6. RITALIN [Concomitant]
     Dosage: 20 MG, 1X/DAY
     Route: 048
     Dates: start: 20090214
  7. STADOL [Concomitant]
     Indication: MIGRAINE
     Dosage: 10MG/2.5ML, AS NEEDED
     Route: 045
     Dates: start: 20090214
  8. ZOLOFT [Concomitant]
     Dosage: 150 MG, 1X/DAY
     Route: 048
     Dates: start: 20090214
  9. CEREBYX [Concomitant]
     Dosage: 1 G, UNK
     Route: 042
     Dates: start: 20090215

REACTIONS (1)
  - Stevens-Johnson syndrome [Unknown]
